FAERS Safety Report 18212171 (Version 2)
Quarter: 2020Q3

REPORT INFORMATION
  Report Type: Spontaneous
  Country: NL (occurrence: NL)
  Receive Date: 20200831
  Receipt Date: 20200901
  Transmission Date: 20201103
  Serious: Yes (Death, Life-Threatening, Other)
  Sender: FDA-Public Use
  Company Number: NL-PFIZER INC-2020333037

PATIENT
  Age: 63 Year
  Sex: Male

DRUGS (2)
  1. ETOPOSIDE. [Suspect]
     Active Substance: ETOPOSIDE
     Indication: ADENOCARCINOMA
     Dosage: UNK, CYCLIC (3 COURSES)
  2. CARBOPLATIN. [Suspect]
     Active Substance: CARBOPLATIN
     Indication: ADENOCARCINOMA
     Dosage: UNK, CYCLIC (3 COURSES)

REACTIONS (5)
  - Dysphagia [Fatal]
  - Weight decreased [Fatal]
  - Product use in unapproved indication [Unknown]
  - Bronchopleural fistula [Fatal]
  - Off label use [Unknown]

NARRATIVE: CASE EVENT DATE: 2018
